FAERS Safety Report 10972714 (Version 1)
Quarter: 2015Q1

REPORT INFORMATION
  Report Type: Report from Study
  Country: TR (occurrence: TR)
  Receive Date: 20150331
  Receipt Date: 20150331
  Transmission Date: 20150721
  Serious: Yes (Other)
  Sender: FDA-Public Use
  Company Number: TR-MYLANLABS-2015M1010147

PATIENT

DRUGS (3)
  1. PROXYMETACAINE [Concomitant]
     Dosage: 0.5%
     Route: 065
  2. LOSARTAN [Suspect]
     Active Substance: LOSARTAN
     Route: 065
  3. CYCLOPENTOLATE W/PHENYLEPHRINE [Concomitant]
     Dosage: 1 DROP OF CYCLOPENTOLATE 1% + PHENYLEPHRINE 2.5%
     Route: 065

REACTIONS (1)
  - Floppy iris syndrome [Unknown]
